FAERS Safety Report 9098076 (Version 1)
Quarter: 2013Q1

REPORT INFORMATION
  Report Type: Spontaneous
  Country: US (occurrence: US)
  Receive Date: 20130213
  Receipt Date: 20130213
  Transmission Date: 20140127
  Serious: Yes (Other)
  Sender: FDA-Public Use
  Company Number: US-ELI_LILLY_AND_COMPANY-US201302002277

PATIENT
  Sex: Male

DRUGS (7)
  1. HUMULIN REGULAR [Suspect]
     Indication: DIABETES MELLITUS
     Dosage: UNK
     Dates: start: 1983
  2. HUMULIN REGULAR [Suspect]
     Dosage: 10 U, TID
  3. HUMULIN REGULAR [Suspect]
     Dosage: UNK, PRN
  4. HUMULIN NPH [Suspect]
     Indication: DIABETES MELLITUS
     Dosage: UNK
     Dates: start: 1983
  5. HUMULIN NPH [Suspect]
     Dosage: 23 U, EACH MORNING
  6. HUMULIN NPH [Suspect]
     Dosage: UNK, PRN
  7. LIPITOR [Concomitant]

REACTIONS (2)
  - Blindness [Not Recovered/Not Resolved]
  - Balance disorder [Not Recovered/Not Resolved]
